FAERS Safety Report 20624667 (Version 1)
Quarter: 2022Q1

REPORT INFORMATION
  Report Type: Spontaneous
  Country: TW (occurrence: TW)
  Receive Date: 20220323
  Receipt Date: 20220323
  Transmission Date: 20220423
  Serious: Yes (Hospitalization)
  Sender: FDA-Public Use
  Company Number: TW-STRIDES ARCOLAB LIMITED-2022SP002830

PATIENT
  Age: 29 Year
  Sex: Female

DRUGS (3)
  1. PREDNISOLONE [Suspect]
     Active Substance: PREDNISOLONE
     Indication: Still^s disease
     Dosage: 20 MILLIGRAM PER DAY
     Route: 048
  2. PREDNISOLONE [Suspect]
     Active Substance: PREDNISOLONE
     Dosage: UNK,MAINTENANCE THERAPY
     Route: 065
  3. BETAMETHASONE [Suspect]
     Active Substance: BETAMETHASONE
     Indication: Still^s disease
     Dosage: 8 MILLIGRAM PER DAY
     Route: 042

REACTIONS (2)
  - Drug-induced liver injury [Recovered/Resolved]
  - Hepatitis acute [Recovered/Resolved]
